FAERS Safety Report 6124206-9 (Version None)
Quarter: 2009Q1

REPORT INFORMATION
  Report Type: 
  Country: None (occurrence: None)
  Receive Date: 20090317
  Receipt Date: 20090304
  Transmission Date: 20090719
  Serious: Yes (Hospitalization)
  Sender: FDA-Public Use
  Company Number: 1-17731994

PATIENT
  Sex: Female

DRUGS (3)
  1. WARFARIN SODIUM [Suspect]
     Indication: PULMONARY EMBOLISM
     Dosage: ORAL
     Route: 048
  2. UNFRATIONATED HEPARIN [Suspect]
     Indication: ANTICOAGULANT THERAPY
     Dosage: INTRAVENOUS
     Route: 042
  3. ENOXAPARIN SODIUM [Suspect]
     Indication: PULMONARY EMBOLISM
     Dosage: 90 MG TWICE DAILY, SUBCUTANEOUS
     Route: 058

REACTIONS (4)
  - COLON CANCER METASTATIC [None]
  - DISEASE COMPLICATION [None]
  - HEPARIN-INDUCED THROMBOCYTOPENIA [None]
  - SKIN NECROSIS [None]
